FAERS Safety Report 11142014 (Version 1)
Quarter: 2015Q2

REPORT INFORMATION
  Report Type: Spontaneous
  Country: IL (occurrence: IL)
  Receive Date: 20150527
  Receipt Date: 20150527
  Transmission Date: 20150821
  Serious: Yes (Hospitalization)
  Sender: FDA-Public Use
  Company Number: IL-BAUSCH-BL-2015-014028

PATIENT
  Age: 70 Year
  Sex: Male

DRUGS (1)
  1. HERBESSER [Suspect]
     Active Substance: DILTIAZEM HYDROCHLORIDE
     Indication: ANGINA PECTORIS
     Route: 048

REACTIONS (6)
  - Periorbital oedema [Recovered/Resolved]
  - Vision blurred [Recovered/Resolved]
  - Oedema peripheral [Recovered/Resolved]
  - Conjunctival oedema [Recovered/Resolved]
  - Exophthalmos [Recovered/Resolved]
  - Erythema [Recovered/Resolved]
